FAERS Safety Report 9847506 (Version 2)
Quarter: 2015Q1

REPORT INFORMATION
  Report Type: Report from Study
  Country: US (occurrence: US)
  Receive Date: 20140127
  Receipt Date: 20150318
  Transmission Date: 20150721
  Serious: Yes (Death)
  Sender: FDA-Public Use
  Company Number: US-ROCHE-1334678

PATIENT
  Sex: Male

DRUGS (7)
  1. AVASTIN [Suspect]
     Active Substance: BEVACIZUMAB
     Indication: BRAIN NEOPLASM MALIGNANT
     Route: 042
     Dates: start: 20110912
  2. AVASTIN [Suspect]
     Active Substance: BEVACIZUMAB
     Route: 042
     Dates: start: 20120214
  3. ATIVAN [Concomitant]
     Active Substance: LORAZEPAM
     Route: 042
  4. ATROPINE [Concomitant]
     Active Substance: ATROPINE
     Route: 042
  5. CPT-11 [Concomitant]
     Active Substance: IRINOTECAN
     Dosage: IN 500 D5W
     Route: 042
  6. ZOFRAN [Concomitant]
     Active Substance: ONDANSETRON HYDROCHLORIDE
     Dosage: IN 50 NORMAL SALINE
     Route: 042
  7. DEXAMETHASONE. [Concomitant]
     Active Substance: DEXAMETHASONE
     Dosage: IN 50 NORMAL SALINE
     Route: 042

REACTIONS (1)
  - Disease progression [Fatal]
